FAERS Safety Report 5532792-2 (Version None)
Quarter: 2007Q4

REPORT INFORMATION
  Report Type: 
  Country: None (occurrence: None)
  Receive Date: 20071130
  Receipt Date: 20071130
  Transmission Date: 20080405
  Serious: No
  Sender: FDA-Public Use
  Company Number: None

PATIENT
  Age: 83 Year
  Sex: Female
  Weight: 115 kg

DRUGS (1)
  1. WARFARIN SODIUM [Suspect]
     Dosage: 10   DAILY  PO
     Route: 048

REACTIONS (2)
  - DRUG TOXICITY [None]
  - GASTROINTESTINAL HAEMORRHAGE [None]
